FAERS Safety Report 21060554 (Version 2)
Quarter: 2022Q3

REPORT INFORMATION
  Report Type: Spontaneous
  Country: KR (occurrence: KR)
  Receive Date: 20220708
  Receipt Date: 20220718
  Transmission Date: 20221026
  Serious: Yes (Hospitalization)
  Sender: FDA-Public Use
  Company Number: KR-009507513-2207KOR000251

PATIENT
  Age: 71 Year
  Sex: Male

DRUGS (1)
  1. TEMODAL [Suspect]
     Active Substance: TEMOZOLOMIDE
     Indication: Glioblastoma
     Dosage: 140 MILLIGRAM (AC0-0-1), FOR 30 TIMES
     Route: 048
     Dates: start: 20210405, end: 20210510

REACTIONS (3)
  - Nausea [Recovered/Resolved]
  - Muscular weakness [Recovered/Resolved]
  - Decreased appetite [Recovered/Resolved]

NARRATIVE: CASE EVENT DATE: 20210414
